FAERS Safety Report 7541964-7 (Version None)
Quarter: 2011Q2

REPORT INFORMATION
  Report Type: 
  Country: None (occurrence: None)
  Receive Date: 20110613
  Receipt Date: 20110520
  Transmission Date: 20111010
  Serious: Yes (Death, Hospitalization, Other)
  Sender: FDA-Public Use
  Company Number: IE-PFIZER INC-2011098875

PATIENT
  Age: 54 Year
  Sex: Male

DRUGS (10)
  1. BUPRENORPHINE [Concomitant]
     Indication: PAIN
     Dosage: 25 UG, UNK
     Route: 061
  2. CLOPIDOGREL [Concomitant]
  3. METRONIDAZOLE [Concomitant]
     Indication: OSTEOMYELITIS
     Dosage: 500 MG, EVERY 8 HOURS
     Route: 042
  4. FLUCLOXACILLIN [Concomitant]
     Indication: OSTEOMYELITIS
     Dosage: 2 G, EVERY 4 HRS
     Route: 042
  5. PREGABALIN [Concomitant]
     Indication: PAIN
     Dosage: 100 MG, EVERY 8 HOURS
     Route: 048
  6. ATORVASTATIN CALCIUM [Suspect]
     Dosage: 10 MG, 1X/DAY
  7. FUSIDIC ACID [Interacting]
     Indication: OSTEOMYELITIS
     Dosage: 500 MG, EVERY 8 HOURS
     Route: 042
  8. ACETYLSALICYLIC ACID [Concomitant]
  9. RAMIPRIL [Concomitant]
  10. ATORVASTATIN CALCIUM [Interacting]
     Dosage: 80 MG, 1X/DAY

REACTIONS (2)
  - DRUG INTERACTION [None]
  - RHABDOMYOLYSIS [None]
